FAERS Safety Report 10893001 (Version 1)
Quarter: 2015Q1

REPORT INFORMATION
  Report Type: Spontaneous
  Country: MX (occurrence: MX)
  Receive Date: 20150306
  Receipt Date: 20150306
  Transmission Date: 20150721
  Serious: Yes (Hospitalization)
  Sender: FDA-Public Use
  Company Number: MX-UPSHER-SMITH LABORATORIES, INC.-15000488

PATIENT
  Age: 42 Year
  Sex: Female

DRUGS (2)
  1. POTASSIUM CHLORIDE ER [Suspect]
     Active Substance: POTASSIUM CHLORIDE
     Indication: PRODUCT USED FOR UNKNOWN INDICATION
     Dosage: 1000 MEQ, ONCE
     Route: 048
  2. CLONAZEPAM. [Suspect]
     Active Substance: CLONAZEPAM
     Indication: PRODUCT USED FOR UNKNOWN INDICATION
     Dosage: 50 MG, ONCE
     Route: 048

REACTIONS (6)
  - Tachycardia [Recovered/Resolved]
  - Metabolic acidosis [Recovered/Resolved]
  - Hyperlactacidaemia [Recovered/Resolved]
  - Intentional overdose [Recovered/Resolved]
  - Somnolence [Recovered/Resolved]
  - Bezoar [Recovered/Resolved]
